FAERS Safety Report 6283482-2 (Version None)
Quarter: 2009Q3

REPORT INFORMATION
  Report Type: 
  Country: None (occurrence: None)
  Receive Date: 20090724
  Receipt Date: 20070710
  Transmission Date: 20100115
  Serious: Yes (Other)
  Sender: FDA-Public Use
  Company Number: US-ASTRAZENECA-2006UW08002

PATIENT
  Age: 18335 Day
  Sex: Female
  Weight: 63.5 kg

DRUGS (6)
  1. SEROQUEL [Suspect]
     Indication: DEPRESSION
     Route: 048
     Dates: start: 20030101
  2. SEROQUEL [Suspect]
     Indication: SLEEP DISORDER
     Route: 048
     Dates: start: 20030101
  3. SEROQUEL [Suspect]
     Dosage: 25 MG THREE AT NIGHT
     Route: 048
     Dates: start: 20030327
  4. SEROQUEL [Suspect]
     Dosage: 25 MG THREE AT NIGHT
     Route: 048
     Dates: start: 20030327
  5. LEXAPRO [Concomitant]
     Dates: start: 20030327
  6. GLUCOVANCE [Concomitant]
     Dates: start: 20030717

REACTIONS (4)
  - INJURY [None]
  - NEUROPATHY PERIPHERAL [None]
  - TYPE 1 DIABETES MELLITUS [None]
  - TYPE 2 DIABETES MELLITUS [None]
